FAERS Safety Report 7006157-0 (Version None)
Quarter: 2010Q3

REPORT INFORMATION
  Report Type: 
  Country: None (occurrence: None)
  Receive Date: 20100921
  Receipt Date: 20100914
  Transmission Date: 20110219
  Serious: Yes (Hospitalization, Other)
  Sender: FDA-Public Use
  Company Number: US-PFIZER INC-2010099810

PATIENT
  Sex: Female
  Weight: 78.458 kg

DRUGS (13)
  1. LIPITOR [Suspect]
     Indication: BLOOD CHOLESTEROL INCREASED
     Dosage: UNK
  2. PRISTIQ [Suspect]
     Indication: ANHEDONIA
     Dosage: 50 MG, DAILY
     Route: 048
     Dates: start: 20100101
  3. EFFEXOR [Suspect]
     Dosage: UNK
     Dates: start: 20060101, end: 20060101
  4. EFFEXOR XR [Suspect]
     Dosage: UNK
     Dates: start: 20060101
  5. WELLBUTRIN [Suspect]
     Dosage: UNK
  6. CRESTOR [Suspect]
     Dosage: UNK
  7. PROTONIX [Concomitant]
     Dosage: UNK
  8. METOPROLOL [Concomitant]
     Dosage: 100 MG, 2X/DAY
  9. MICARDIS [Concomitant]
     Dosage: 80 MG, DAILY
  10. ZOCOR [Concomitant]
     Dosage: 40 MG, UNK
  11. KLONOPIN [Concomitant]
     Dosage: UNK, AS NEEDED
  12. PLAVIX [Concomitant]
     Dosage: UNK
  13. ACETYLSALICYLIC ACID [Concomitant]
     Dosage: UNK

REACTIONS (17)
  - BRAIN INJURY [None]
  - DRUG HYPERSENSITIVITY [None]
  - GAIT DISTURBANCE [None]
  - HYPERPHAGIA [None]
  - INJURY [None]
  - MUSCULAR WEAKNESS [None]
  - PANIC ATTACK [None]
  - PSYCHOMOTOR HYPERACTIVITY [None]
  - PULMONARY OEDEMA [None]
  - RESPIRATORY TRACT INFECTION [None]
  - SINUS DISORDER [None]
  - SINUSITIS [None]
  - SOMNOLENCE [None]
  - TRANSIENT ISCHAEMIC ATTACK [None]
  - VASCULAR GRAFT [None]
  - VERTIGO [None]
  - WEIGHT INCREASED [None]
